FAERS Safety Report 9258327 (Version 1)
Quarter: 2013Q2

REPORT INFORMATION
  Report Type: Spontaneous
  Country: US (occurrence: US)
  Receive Date: 20130426
  Receipt Date: 20130426
  Transmission Date: 20140414
  Serious: No
  Sender: FDA-Public Use
  Company Number: US-PFIZER INC-2013130709

PATIENT
  Age: 77 Year
  Sex: Female
  Weight: 76.19 kg

DRUGS (2)
  1. GABAPENTIN [Suspect]
     Indication: FIBROMYALGIA
     Dosage: 300 MG, 4X/DAY
     Dates: start: 201111, end: 2011
  2. GABAPENTIN [Suspect]
     Indication: PRURITUS
     Dosage: UNK
     Dates: start: 2011, end: 2012

REACTIONS (4)
  - Off label use [Unknown]
  - Pruritus [Unknown]
  - Therapeutic response unexpected [Unknown]
  - Alopecia [Recovered/Resolved]
